FAERS Safety Report 15760752 (Version 1)
Quarter: 2018Q4

REPORT INFORMATION
  Report Type: Spontaneous
  Country: US (occurrence: US)
  Receive Date: 20181226
  Receipt Date: 20181226
  Transmission Date: 20190205
  Serious: No
  Sender: FDA-Public Use
  Company Number: US-ABBVIE-18P-163-2405882-00

PATIENT
  Age: 28 Year
  Sex: Female

DRUGS (1)
  1. LUPRON DEPOT [Suspect]
     Active Substance: LEUPROLIDE ACETATE
     Indication: OCCUPATIONAL EXPOSURE TO PRODUCT
     Route: 050

REACTIONS (4)
  - Syringe issue [Unknown]
  - Burning sensation [Recovered/Resolved]
  - Occupational exposure to product [Recovered/Resolved]
  - Pain [Not Recovered/Not Resolved]
